FAERS Safety Report 11771749 (Version 1)
Quarter: 2015Q4

REPORT INFORMATION
  Report Type: Spontaneous
  Country: US (occurrence: None)
  Receive Date: 20151123
  Receipt Date: 20151123
  Transmission Date: 20160304
  Serious: Yes (Other)
  Sender: FDA-Public Use
  Company Number: None

PATIENT
  Age: 62 Year
  Sex: Female

DRUGS (4)
  1. HYDROCHLOROTHIAZIDE. [Concomitant]
     Active Substance: HYDROCHLOROTHIAZIDE
  2. LOSARTAN. [Concomitant]
     Active Substance: LOSARTAN
  3. GABAPENTIN. [Concomitant]
     Active Substance: GABAPENTIN
  4. PERIDEX [Suspect]
     Active Substance: CHLORHEXIDINE GLUCONATE
     Indication: INFECTION PROPHYLAXIS
     Dosage: ORAL RINSE
     Route: 048
     Dates: start: 20150909, end: 20150930

REACTIONS (6)
  - Tongue pruritus [None]
  - Glossodynia [None]
  - Paraesthesia oral [None]
  - Tongue disorder [None]
  - Burning sensation [None]
  - Oral pain [None]

NARRATIVE: CASE EVENT DATE: 20150909
